FAERS Safety Report 8373712-5 (Version None)
Quarter: 2012Q2

REPORT INFORMATION
  Report Type: 
  Country: None (occurrence: None)
  Receive Date: 20120521
  Receipt Date: 20120516
  Transmission Date: 20120825
  Serious: Yes (Disabling, Other)
  Sender: FDA-Public Use
  Company Number: AU-ROCHE-1054521

PATIENT
  Sex: Female

DRUGS (3)
  1. VASOCARDOL [Concomitant]
  2. WARFARIN SODIUM [Concomitant]
  3. LUCENTIS [Suspect]
     Indication: AGE-RELATED MACULAR DEGENERATION
     Route: 031
     Dates: start: 20070801

REACTIONS (3)
  - INJECTION SITE PAIN [None]
  - ATRIAL FIBRILLATION [None]
  - VISUAL IMPAIRMENT [None]
